APPROVED DRUG PRODUCT: PYRILAMINE MALEATE
Active Ingredient: PYRILAMINE MALEATE
Strength: 25MG
Dosage Form/Route: TABLET;ORAL
Application: A080808 | Product #001
Applicant: IMPAX LABORATORIES INC
Approved: Approved Prior to Jan 1, 1982 | RLD: No | RS: No | Type: DISCN